FAERS Safety Report 5883334-3 (Version None)
Quarter: 2008Q3

REPORT INFORMATION
  Report Type: 
  Country: None (occurrence: None)
  Receive Date: 20080910
  Receipt Date: 20080825
  Transmission Date: 20090109
  Serious: Yes (Hospitalization)
  Sender: FDA-Public Use
  Company Number: 8036720

PATIENT
  Age: 55 Year
  Sex: Male

DRUGS (6)
  1. PREDNISOLONE [Suspect]
     Dosage: NI
     Dates: start: 20050101
  2. PREDNISOLONE [Suspect]
     Dosage: 50 MG 1/D
  3. PREDNISOLONE [Suspect]
     Dosage: 5 MG 1/D
  4. CYCLOSPORINE [Suspect]
     Dosage: NI
     Dates: start: 20050101
  5. CYCLOSPORINE [Suspect]
     Dosage: 75 MG 2/D
  6. MYCOPHENOLIC ACID [Suspect]
     Dosage: NI
     Dates: start: 20050101

REACTIONS (1)
  - AUTOIMMUNE HEPATITIS [None]
